FAERS Safety Report 6794030-2 (Version None)
Quarter: 2010Q2

REPORT INFORMATION
  Report Type: 
  Country: None (occurrence: None)
  Receive Date: 20100624
  Receipt Date: 20070810
  Transmission Date: 20101027
  Serious: Yes (Hospitalization)
  Sender: FDA-Public Use
  Company Number: US-PFIZER INC-ENC200700127

PATIENT
  Sex: Male
  Weight: 64 kg

DRUGS (3)
  1. ARGATROBAN [Suspect]
     Indication: HEPARIN-INDUCED THROMBOCYTOPENIA
     Route: 042
     Dates: start: 20070701, end: 20070802
  2. ARGATROBAN [Suspect]
     Dates: start: 20070804
  3. BIVALIRUDIN [Suspect]
     Indication: CORONARY ARTERY BYPASS
     Route: 042
     Dates: start: 20070802, end: 20070802

REACTIONS (2)
  - GASTROINTESTINAL HAEMORRHAGE [None]
  - INCISION SITE HAEMORRHAGE [None]
